FAERS Safety Report 16053018 (Version 1)
Quarter: 2019Q1

REPORT INFORMATION
  Report Type: Spontaneous
  Country: US (occurrence: US)
  Receive Date: 20190308
  Receipt Date: 20190308
  Transmission Date: 20190418
  Serious: No
  Sender: FDA-Public Use
  Company Number: US-TEVA-2019-US-1011362

PATIENT
  Age: 40 Year
  Sex: Female

DRUGS (1)
  1. ADDERALL [Suspect]
     Active Substance: AMPHETAMINE ASPARTATE\AMPHETAMINE SULFATE\DEXTROAMPHETAMINE SACCHARATE\DEXTROAMPHETAMINE SULFATE
     Dates: start: 20190128

REACTIONS (5)
  - Product quality issue [Unknown]
  - Nasopharyngitis [Unknown]
  - Headache [Unknown]
  - Chills [Unknown]
  - Somnolence [Unknown]

NARRATIVE: CASE EVENT DATE: 20190128
